FAERS Safety Report 11326787 (Version 1)
Quarter: 2015Q3

REPORT INFORMATION
  Report Type: Spontaneous
  Country: US (occurrence: None)
  Receive Date: 20150729
  Receipt Date: 20150729
  Transmission Date: 20151125
  Serious: No
  Sender: FDA-Public Use
  Company Number: None

PATIENT
  Age: 57 Year
  Sex: Male

DRUGS (11)
  1. MYCOPHENOLATE [Concomitant]
     Active Substance: MYCOPHENOLIC ACID
  2. HYDROMORPHONE [Concomitant]
     Active Substance: HYDROMORPHONE
  3. INSULIN ASPART [Concomitant]
     Active Substance: INSULIN ASPART
  4. INSULIN GLARGINE [Concomitant]
     Active Substance: INSULIN GLARGINE
  5. VALGANCICLOVIR [Concomitant]
     Active Substance: VALGANCICLOVIR
  6. FUROSEMIDE. [Concomitant]
     Active Substance: FUROSEMIDE
  7. LINEZOLID. [Suspect]
     Active Substance: LINEZOLID
     Indication: INFECTION
     Route: 048
     Dates: start: 20150222, end: 20150228
  8. SULFAMETHOXAZOLE-TRIMETHOPRIM [Concomitant]
     Active Substance: SULFAMETHOXAZOLE\TRIMETHOPRIM
  9. PREDNISONE. [Concomitant]
     Active Substance: PREDNISONE
  10. TACROLIMUS. [Concomitant]
     Active Substance: TACROLIMUS
  11. ASPIRIN. [Concomitant]
     Active Substance: ASPIRIN

REACTIONS (1)
  - Leukopenia [None]

NARRATIVE: CASE EVENT DATE: 20150228
